FAERS Safety Report 24445343 (Version 1)
Quarter: 2024Q4

REPORT INFORMATION
  Report Type: Spontaneous
  Country: US (occurrence: US)
  Receive Date: 20241016
  Receipt Date: 20241016
  Transmission Date: 20250115
  Serious: No
  Sender: NOVARTIS
  Company Number: US-SANDOZ-SDZ2024US002803

PATIENT
  Sex: Female
  Weight: 54.422 kg

DRUGS (14)
  1. CLINDAMYCIN PHOSPHATE [Suspect]
     Active Substance: CLINDAMYCIN PHOSPHATE
     Indication: Hidradenitis
     Dosage: 1 UNK, BID
     Route: 061
     Dates: start: 20220706
  2. DOXYCYCLINE HYCLATE [Suspect]
     Active Substance: DOXYCYCLINE HYCLATE
     Indication: Hidradenitis
     Dosage: 2 DOSAGE FORM, QD
     Route: 048
     Dates: start: 20220706
  3. TRAMADOL [Suspect]
     Active Substance: TRAMADOL
     Indication: Hidradenitis
     Dosage: 50 MG, QD
     Route: 048
     Dates: start: 20220706
  4. METHOTREXATE [Suspect]
     Active Substance: METHOTREXATE
     Indication: Product used for unknown indication
     Dosage: UNK
     Route: 065
  5. COSENTYX [Suspect]
     Active Substance: SECUKINUMAB
     Indication: Psoriasis
     Dosage: 300 MG, QW INJECT 2 SYRINGE SC QWK * 5WK
     Route: 058
     Dates: start: 20231228
  6. METFORMIN [Suspect]
     Active Substance: METFORMIN HYDROCHLORIDE
     Indication: Hidradenitis
     Dosage: UNK
     Route: 065
  7. MINOCYCLINE [Suspect]
     Active Substance: MINOCYCLINE HYDROCHLORIDE
     Indication: Hidradenitis
     Dosage: 200 MG, QD
     Route: 048
     Dates: start: 20230615
  8. CLOBETASOL PROPIONATE [Suspect]
     Active Substance: CLOBETASOL PROPIONATE
     Indication: Hidradenitis
     Dosage: 1 DF, BID APPLY BIT TO SWOLLEN BUMPS
     Route: 061
     Dates: start: 20221026
  9. OTEZLA [Suspect]
     Active Substance: APREMILAST
     Indication: Hidradenitis
     Dosage: 30 MG, BID
     Route: 048
     Dates: start: 20221117
  10. HUMIRA [Suspect]
     Active Substance: ADALIMUMAB
     Indication: Hidradenitis
     Dosage: 80 MG, Q2W FREQUENCY AS DIRECTED
     Route: 058
     Dates: start: 20220713
  11. SPIRONOLACTONE [Suspect]
     Active Substance: SPIRONOLACTONE
     Indication: Hidradenitis
     Dosage: 100 MG, QD
     Route: 048
     Dates: start: 20230725
  12. LEXAPRO [Suspect]
     Active Substance: ESCITALOPRAM OXALATE
     Indication: Hidradenitis
     Dosage: 10 MG, QD
     Route: 048
  13. TRAZODONE HCL [Suspect]
     Active Substance: TRAZODONE HYDROCHLORIDE
     Indication: Hidradenitis
     Dosage: 100 MG, QD
     Route: 048
  14. TRIAMTERENE AND HYDROCHLOROTHIAZIDE [Suspect]
     Active Substance: HYDROCHLOROTHIAZIDE\TRIAMTERENE
     Indication: Hidradenitis
     Dosage: 37.5/25 MG, QD
     Route: 048

REACTIONS (3)
  - Hidradenitis [Unknown]
  - Disease progression [Unknown]
  - Drug ineffective [Unknown]
